APPROVED DRUG PRODUCT: DOXYCYCLINE
Active Ingredient: DOXYCYCLINE
Strength: EQ 150MG BASE
Dosage Form/Route: CAPSULE;ORAL
Application: A200065 | Product #001
Applicant: IMPAX LABORATORIES INC
Approved: Feb 17, 2011 | RLD: No | RS: No | Type: DISCN